FAERS Safety Report 19862094 (Version 7)
Quarter: 2022Q2

REPORT INFORMATION
  Report Type: Report from Study
  Country: US (occurrence: US)
  Receive Date: 20210921
  Receipt Date: 20220429
  Transmission Date: 20220721
  Serious: No
  Sender: FDA-Public Use
  Company Number: US-NOVARTISTESTPH-NVSC2021US213450

PATIENT
  Sex: Male

DRUGS (2)
  1. KESIMPTA [Suspect]
     Active Substance: OFATUMUMAB
     Indication: Relapsing-remitting multiple sclerosis
     Dosage: 20 MG, QMO(BENEATH THE SKIN,SUBCUTANEOUS - BENEATH THE SKIN,)
     Route: 058
     Dates: start: 20210806
  2. KESIMPTA [Suspect]
     Active Substance: OFATUMUMAB
     Dosage: 20 MG, QMO
     Route: 058

REACTIONS (4)
  - Auditory disorder [Not Recovered/Not Resolved]
  - Irritability [Not Recovered/Not Resolved]
  - Fatigue [Not Recovered/Not Resolved]
  - COVID-19 [Recovering/Resolving]
